FAERS Safety Report 5065349-0 (Version None)
Quarter: 2006Q3

REPORT INFORMATION
  Report Type: 
  Country: None (occurrence: None)
  Receive Date: 20060725
  Receipt Date: 20060703
  Transmission Date: 20061208
  Serious: Yes (Hospitalization)
  Sender: FDA-Public Use
  Company Number: 2006RR-02964

PATIENT
  Age: 63 Year
  Sex: Male

DRUGS (8)
  1. SIMVASTATIN [Suspect]
     Dosage: 40 MG, QD,
     Dates: start: 19950101
  2. VERAPAMIL [Suspect]
     Indication: BLOOD PRESSURE INCREASED
     Dates: start: 20001201
  3. VALPROIC ACID [Suspect]
     Dosage: 500 MG, QD
  4. NEORAL [Suspect]
     Indication: IMMUNOSUPPRESSION
     Dosage: 175 MG, QD
  5. PREDNISOLONE [Concomitant]
  6. ALTIZIDE/SPIRONOLACTONE FAMILY [Concomitant]
  7. SPIRONOLACTONE [Concomitant]
  8. KARDEGIC 160 [Concomitant]

REACTIONS (5)
  - HEPATIC ENZYME INCREASED [None]
  - HYPERKALAEMIA [None]
  - RENAL IMPAIRMENT [None]
  - RHABDOMYOLYSIS [None]
  - STAPHYLOCOCCAL INFECTION [None]
